FAERS Safety Report 9732948 (Version 1)
Quarter: 2013Q4

REPORT INFORMATION
  Report Type: Spontaneous
  Country: US (occurrence: US)
  Receive Date: 20131205
  Receipt Date: 20131205
  Transmission Date: 20140711
  Serious: No
  Sender: FDA-Public Use
  Company Number: US-ABBVIE-13P-163-1078565-00

PATIENT
  Age: 11 Month
  Sex: Female

DRUGS (1)
  1. OMNICEF [Suspect]
     Indication: EAR INFECTION
     Dates: start: 20130414

REACTIONS (1)
  - Faeces discoloured [Not Recovered/Not Resolved]
